FAERS Safety Report 10028883 (Version 2)
Quarter: 2014Q1

REPORT INFORMATION
  Report Type: Spontaneous
  Country: US (occurrence: US)
  Receive Date: 20140321
  Receipt Date: 20140321
  Transmission Date: 20141002
  Serious: Yes (Death)
  Sender: FDA-Public Use
  Company Number: US-GE HEALTHCARE MEDICAL DIAGNOSTICS-OSCN-PR-0903S-0134

PATIENT
  Age: 50 Year
  Sex: Male

DRUGS (5)
  1. GADOLINIUM (UNSPECIFIED) [Suspect]
     Indication: RENAL FAILURE
     Route: 042
     Dates: start: 20000205, end: 20000205
  2. GADOLINIUM (UNSPECIFIED) [Suspect]
     Indication: PRODUCT USED FOR UNKNOWN INDICATION
     Route: 042
     Dates: start: 20000505, end: 20000505
  3. GADOLINIUM (UNSPECIFIED) [Suspect]
     Route: 042
     Dates: start: 20011217, end: 20011217
  4. MAGNEVIST [Suspect]
     Indication: HYPERTENSION
     Route: 042
     Dates: start: 20060726, end: 20060726
  5. MAGNEVIST [Suspect]
     Route: 042
     Dates: start: 20060809, end: 20060809

REACTIONS (1)
  - Nephrogenic systemic fibrosis [Fatal]
